FAERS Safety Report 9430504 (Version 1)
Quarter: 2013Q3

REPORT INFORMATION
  Report Type: Spontaneous
  Country: DE (occurrence: DE)
  Receive Date: 20130730
  Receipt Date: 20130730
  Transmission Date: 20140515
  Serious: Yes (Disabling)
  Sender: FDA-Public Use
  Company Number: DE-GLAXOSMITHKLINE-D0080387A

PATIENT
  Age: 60 Year
  Sex: Female
  Weight: 49 kg

DRUGS (5)
  1. TYVERB [Suspect]
     Indication: BREAST CANCER METASTATIC
     Dosage: 1250MG PER DAY
     Route: 048
     Dates: start: 201005
  2. EXEMESTAN [Concomitant]
     Dosage: 25MG UNKNOWN
     Route: 048
  3. CANDESARTAN CILEXETIL + HYDROCHLOROTHIAZIDE [Concomitant]
     Dosage: 28.5MG IN THE MORNING
     Route: 048
  4. CONCOR [Concomitant]
     Dosage: 5MG IN THE MORNING
     Route: 048
  5. EUTHYROX [Concomitant]
     Dosage: 50UG IN THE MORNING
     Route: 048

REACTIONS (2)
  - Aphonia [Not Recovered/Not Resolved]
  - Vocal cord paresis [Not Recovered/Not Resolved]
